FAERS Safety Report 5273046-1 (Version None)
Quarter: 2007Q1

REPORT INFORMATION
  Report Type: 
  Country: None (occurrence: None)
  Receive Date: 20070322
  Receipt Date: 20070312
  Transmission Date: 20070707
  Serious: Yes (Other)
  Sender: FDA-Public Use
  Company Number: US-SHR-US-2006-039766

PATIENT
  Age: 46 Year
  Sex: Female
  Weight: 83.9 kg

DRUGS (4)
  1. BETASERON [Suspect]
     Indication: RELAPSING-REMITTING MULTIPLE SCLEROSIS
     Dosage: 8 MIU, EVERY 2D
     Route: 058
     Dates: start: 20060812
  2. CELEBREX [Concomitant]
     Dosage: 200 MG/D, UNK
  3. PROTONIX [Concomitant]
     Dosage: 40 MG/D, UNK
  4. SYNTHROID [Concomitant]
     Dosage: .075 MG/D, UNK

REACTIONS (19)
  - ATELECTASIS [None]
  - BLOOD URINE PRESENT [None]
  - CHOLECYSTITIS CHRONIC [None]
  - CONSTIPATION [None]
  - HAEMATOCHEZIA [None]
  - HEPATIC CYST [None]
  - HEPATIC ENZYME INCREASED [None]
  - HEPATIC STEATOSIS [None]
  - HYPERPLASTIC CHOLECYSTOPATHY [None]
  - LIVER FUNCTION TEST ABNORMAL [None]
  - MICROGNATHIA [None]
  - MIGRAINE [None]
  - PALATAL OEDEMA [None]
  - PRURITUS [None]
  - RESPIRATORY TRACT CONGESTION [None]
  - SLEEP APNOEA SYNDROME [None]
  - TEMPERATURE INTOLERANCE [None]
  - URINARY TRACT INFECTION [None]
  - VITAMIN B12 DEFICIENCY [None]
